FAERS Safety Report 4466224-2 (Version None)
Quarter: 2004Q3

REPORT INFORMATION
  Report Type: 
  Country: None (occurrence: None)
  Receive Date: 20040930
  Receipt Date: 20040914
  Transmission Date: 20050211
  Serious: Yes (Death, Hospitalization)
  Sender: FDA-Public Use
  Company Number: 2004-DE-04850GD

PATIENT
  Age: 67 Year
  Sex: Female

DRUGS (4)
  1. NEVIRAPINE (NEVIRAPINE) [Suspect]
     Indication: HIV INFECTION
     Dosage: 400 MG
     Dates: start: 20030201
  2. LAMIVUDINE [Suspect]
     Indication: HIV INFECTION
     Dosage: 50 MG (NR)
     Dates: start: 20030201
  3. STAVUDINE (STAVUDINE) [Suspect]
     Indication: HIV INFECTION
     Dosage: 20 MG (NR)
     Dates: start: 20030201
  4. ANTIHYPERTENSIVES [Concomitant]

REACTIONS (13)
  - BACTERIAL INFECTION [None]
  - CANDIDIASIS [None]
  - CD4 LYMPHOCYTES DECREASED [None]
  - CONDITION AGGRAVATED [None]
  - ESCHERICHIA INFECTION [None]
  - GENERAL PHYSICAL HEALTH DETERIORATION [None]
  - KLEBSIELLA INFECTION [None]
  - PATHOGEN RESISTANCE [None]
  - PERITONEAL DIALYSIS [None]
  - PERITONITIS BACTERIAL [None]
  - RENAL IMPAIRMENT [None]
  - SEPTIC SHOCK [None]
  - STREPTOCOCCAL INFECTION [None]
